FAERS Safety Report 6806886-5 (Version None)
Quarter: 2010Q2

REPORT INFORMATION
  Report Type: 
  Country: None (occurrence: None)
  Receive Date: 20100629
  Receipt Date: 20080514
  Transmission Date: 20101027
  Serious: No
  Sender: FDA-Public Use
  Company Number: US-PFIZER INC-2008038351

PATIENT
  Age: 6 Year
  Sex: Female

DRUGS (1)
  1. ZYVOX [Suspect]

REACTIONS (2)
  - PRODUCT QUALITY ISSUE [None]
  - VOMITING [None]
